FAERS Safety Report 16548387 (Version 1)
Quarter: 2019Q3

REPORT INFORMATION
  Report Type: Spontaneous
  Country: US (occurrence: US)
  Receive Date: 20190709
  Receipt Date: 20190709
  Transmission Date: 20191004
  Serious: No
  Sender: FDA-Public Use
  Company Number: US-TEVA-2019-US-1073826

PATIENT

DRUGS (1)
  1. OCTREOTIDE ACETATE SDV [Suspect]
     Active Substance: OCTREOTIDE ACETATE
     Dosage: 100UG IN 1 ML

REACTIONS (2)
  - Device issue [Unknown]
  - Incorrect dose administered [Unknown]
